FAERS Safety Report 8087543-7 (Version None)
Quarter: 2012Q1

REPORT INFORMATION
  Report Type: 
  Country: None (occurrence: None)
  Receive Date: 20120128
  Receipt Date: 20110408
  Transmission Date: 20120608
  Serious: No
  Sender: FDA-Public Use
  Company Number: US-ABBOTT-11P-163-0717859-00

PATIENT
  Age: 61 Year
  Sex: Female

DRUGS (10)
  1. LEUCOVORIN CALCIUM [Concomitant]
     Indication: ADVERSE DRUG REACTION
  2. ZETIA [Concomitant]
     Indication: BLOOD CHOLESTEROL INCREASED
  3. ESTROPIPATE [Concomitant]
     Indication: HORMONE REPLACEMENT THERAPY
  4. TRAMADOL HCL [Concomitant]
     Indication: ARTHRALGIA
     Dosage: 1-2 TABS EVERY 4 HOURS, AS NEEDED
  5. METHOTREXATE [Concomitant]
     Indication: PSORIATIC ARTHROPATHY
  6. SYNTHROID [Concomitant]
     Indication: HYPOTHYROIDISM
  7. NEXIUM [Concomitant]
     Indication: GASTROOESOPHAGEAL REFLUX DISEASE
  8. HUMIRA [Suspect]
     Indication: PSORIATIC ARTHROPATHY
     Dates: start: 20110201
  9. ALDACTAZIDE [Concomitant]
     Indication: HYPERTENSION
     Dosage: 50/50MG, DAILY
  10. CELEBREX [Concomitant]
     Indication: OSTEOPOROSIS

REACTIONS (3)
  - INJECTION SITE PAIN [None]
  - DEVICE MALFUNCTION [None]
  - DRUG DOSE OMISSION [None]
